FAERS Safety Report 10080650 (Version 4)
Quarter: 2014Q2

REPORT INFORMATION
  Report Type: Spontaneous
  Country: US (occurrence: US)
  Receive Date: 20140416
  Receipt Date: 20140618
  Transmission Date: 20141212
  Serious: Yes (Hospitalization, Disabling, Other)
  Sender: FDA-Public Use
  Company Number: US-JNJFOC-20140403787

PATIENT
  Age: 63 Year
  Sex: Female
  Weight: 77.11 kg

DRUGS (15)
  1. DURAGESIC [Suspect]
     Indication: PAIN
     Route: 062
     Dates: start: 2004
  2. DURAGESIC [Suspect]
     Indication: PAIN
     Route: 062
  3. DURAGESIC [Suspect]
     Indication: PAIN
     Route: 062
     Dates: end: 201405
  4. LEVAQUIN [Suspect]
     Indication: PURULENT DISCHARGE
     Route: 065
     Dates: start: 2004
  5. LEVAQUIN [Suspect]
     Indication: FISTULA
     Route: 065
     Dates: start: 2004
  6. LEVAQUIN [Suspect]
     Indication: ABDOMINAL OPERATION
     Route: 065
     Dates: start: 2004
  7. CIPRO [Suspect]
     Indication: FISTULA
     Route: 065
     Dates: start: 2004
  8. MACRODANTIN [Suspect]
     Indication: PRODUCT USED FOR UNKNOWN INDICATION
     Route: 065
  9. OXYCONTIN [Suspect]
     Indication: PRODUCT USED FOR UNKNOWN INDICATION
     Dosage: 60
     Route: 065
     Dates: start: 2014, end: 2014
  10. OXYCONTIN [Suspect]
     Indication: PRODUCT USED FOR UNKNOWN INDICATION
     Dosage: 40
     Route: 065
     Dates: start: 201405, end: 2014
  11. OXYCODONE [Suspect]
     Indication: PRODUCT USED FOR UNKNOWN INDICATION
     Dosage: 40
     Route: 065
     Dates: start: 201405, end: 2014
  12. OXYCODONE [Suspect]
     Indication: PRODUCT USED FOR UNKNOWN INDICATION
     Dosage: 60
     Route: 065
     Dates: start: 2014, end: 2014
  13. METHADONE [Suspect]
     Indication: PAIN
     Route: 048
     Dates: end: 2014
  14. VALIUM [Concomitant]
     Indication: MUSCLE SPASMS
     Route: 048
  15. VALIUM [Concomitant]
     Indication: NERVOUSNESS
     Route: 048

REACTIONS (17)
  - Staphylococcal infection [Recovered/Resolved]
  - Hernia [Unknown]
  - Cerebrovascular accident [Recovered/Resolved]
  - Colostomy [Unknown]
  - Posture abnormal [Recovered/Resolved]
  - Fistula [Not Recovered/Not Resolved]
  - Peritonitis [Recovered/Resolved]
  - Abdominal pain [Unknown]
  - Drug withdrawal syndrome [Not Recovered/Not Resolved]
  - Mental disorder [Unknown]
  - Purulence [Not Recovered/Not Resolved]
  - Abnormal loss of weight [Not Recovered/Not Resolved]
  - Pain [Not Recovered/Not Resolved]
  - Decreased appetite [Not Recovered/Not Resolved]
  - Body height decreased [Not Recovered/Not Resolved]
  - Corrective lens user [Not Recovered/Not Resolved]
  - Drug ineffective [Unknown]
